FAERS Safety Report 6149619-0 (Version None)
Quarter: 2009Q2

REPORT INFORMATION
  Report Type: 
  Country: None (occurrence: None)
  Receive Date: 20090409
  Receipt Date: 20090330
  Transmission Date: 20091009
  Serious: Yes (Hospitalization, Other)
  Sender: FDA-Public Use
  Company Number: US-NOVOPROD-272948

PATIENT
  Age: 33 Year
  Sex: Female
  Weight: 60 kg

DRUGS (6)
  1. NOVOLOG [Suspect]
     Indication: SUICIDE ATTEMPT
     Dosage: 200 IU, UNK
     Route: 058
  2. NOVOLOG [Suspect]
     Indication: DRUG USE FOR UNKNOWN INDICATION
  3. INSULIN GLARGINE [Suspect]
     Indication: SUICIDE ATTEMPT
     Dosage: 300 IU, UNK
     Route: 058
  4. CARBAMAZEPINE [Concomitant]
  5. QUETIAPINE FUMARATE [Concomitant]
  6. FLUOXETINE [Concomitant]

REACTIONS (3)
  - HYPOGLYCAEMIA [None]
  - INTENTIONAL OVERDOSE [None]
  - SUICIDE ATTEMPT [None]
